FAERS Safety Report 11202501 (Version 6)
Quarter: 2015Q4

REPORT INFORMATION
  Report Type: Spontaneous
  Country: US (occurrence: US)
  Receive Date: 20150619
  Receipt Date: 20151030
  Transmission Date: 20160304
  Serious: No
  Sender: FDA-Public Use
  Company Number: US-PFIZER INC-2015200990

PATIENT
  Age: 65 Year
  Sex: Female
  Weight: 142 kg

DRUGS (9)
  1. TAMBOCOR [Concomitant]
     Active Substance: FLECAINIDE ACETATE
     Indication: ATRIAL FIBRILLATION
  2. CARDIZEM [Concomitant]
     Active Substance: DILTIAZEM HYDROCHLORIDE
     Indication: ATRIAL FIBRILLATION
     Dosage: 240 MG, 1X/DAY
     Route: 048
  3. TAMBOCOR [Concomitant]
     Active Substance: FLECAINIDE ACETATE
     Indication: HYPERTENSION
     Dosage: 50 MG, 1X/DAY
  4. METFORMIN [Concomitant]
     Active Substance: METFORMIN HYDROCHLORIDE
     Dosage: 1000 MG, 1X/DAY
     Dates: start: 201409
  5. COZAAR [Concomitant]
     Active Substance: LOSARTAN POTASSIUM
     Indication: HYPERTENSION
     Dosage: 100 MG, 1X/DAY
     Route: 048
  6. HYDROCHLOROTHIAZIDE. [Concomitant]
     Active Substance: HYDROCHLOROTHIAZIDE
     Indication: OEDEMA
     Dosage: 25 MG, 1X/DAY
  7. PRILOSEC [Concomitant]
     Active Substance: OMEPRAZOLE MAGNESIUM
     Indication: GASTRIC PH DECREASED
     Dosage: 40 MG, 1X/DAY
  8. LYRICA [Suspect]
     Active Substance: PREGABALIN
     Indication: MUSCULOSKELETAL PAIN
     Dosage: 50 MG, 3X/DAY
     Route: 048
     Dates: start: 201409
  9. COUMADIN [Concomitant]
     Active Substance: WARFARIN SODIUM
     Indication: ATRIAL FIBRILLATION
     Dosage: 7 MG, 1X/DAY

REACTIONS (4)
  - Drug ineffective [Unknown]
  - Product quality issue [Unknown]
  - Withdrawal syndrome [Unknown]
  - Burning sensation [Unknown]

NARRATIVE: CASE EVENT DATE: 20150605
